FAERS Safety Report 6492920-1 (Version None)
Quarter: 2009Q4

REPORT INFORMATION
  Report Type: 
  Country: None (occurrence: None)
  Receive Date: 20091214
  Receipt Date: 20091204
  Transmission Date: 20100525
  Serious: Yes (Other)
  Sender: FDA-Public Use
  Company Number: PHHY2009CA45603

PATIENT
  Sex: Female

DRUGS (2)
  1. DIOVAN [Suspect]
     Indication: HYPERTENSION
     Dosage: 1 TABLET (160 MG) DAILY
     Route: 048
     Dates: start: 20020428
  2. ATENOLOL [Suspect]
     Dosage: UNK
     Route: 065
     Dates: end: 20030301

REACTIONS (4)
  - AGITATION [None]
  - ALOPECIA [None]
  - BLOOD PRESSURE INCREASED [None]
  - DEMENTIA [None]
